FAERS Safety Report 6734037-4 (Version None)
Quarter: 2010Q2

REPORT INFORMATION
  Report Type: 
  Country: None (occurrence: None)
  Receive Date: 20100520
  Receipt Date: 20100513
  Transmission Date: 20101027
  Serious: Yes (Other)
  Sender: FDA-Public Use
  Company Number: US-PFIZER INC-2010046034

PATIENT
  Sex: Male
  Weight: 63 kg

DRUGS (11)
  1. CHANTIX [Suspect]
     Indication: SMOKING CESSATION THERAPY
     Dosage: 0.5 MG, 1X/DAY
     Route: 048
     Dates: start: 20100201
  2. CHANTIX [Suspect]
     Dosage: 1 MG, 2X/DAY
     Route: 048
  3. CHANTIX [Suspect]
     Dosage: UNK
     Dates: end: 20100503
  4. DILTIAZEM [Concomitant]
     Dosage: 180 MG, DAILY
  5. DILTIAZEM [Concomitant]
     Dosage: 180 MG, UNK
  6. DIGOXIN [Concomitant]
     Dosage: 0.125 MG, UNK
  7. WARFARIN [Concomitant]
     Indication: THROMBOSIS PROPHYLAXIS
     Dosage: 2.5 MG, 1X/DAY
  8. MONTELUKAST [Concomitant]
     Dosage: 10 MG, UNK
  9. TEMAZEPAM [Concomitant]
     Indication: SLEEP DISORDER
     Dosage: 30 MG, 1X/DAY
  10. FUROSEMIDE [Concomitant]
     Dosage: 20 MG, AS NEEDED
  11. PROPOXYPHENE [Concomitant]
     Indication: BACK PAIN
     Dosage: 100 MG, UNK

REACTIONS (2)
  - ABDOMINAL PAIN UPPER [None]
  - GASTROINTESTINAL ULCER [None]
